FAERS Safety Report 11128850 (Version 2)
Quarter: 2015Q2

REPORT INFORMATION
  Report Type: Spontaneous
  Country: CN (occurrence: CN)
  Receive Date: 20150521
  Receipt Date: 20150526
  Transmission Date: 20150821
  Serious: Yes (Other)
  Sender: FDA-Public Use
  Company Number: CN-009507513-1505CHN007626

PATIENT
  Age: 58 Year
  Sex: Female
  Weight: 50 kg

DRUGS (4)
  1. GLUTATHIONE [Concomitant]
     Active Substance: GLUTATHIONE
     Indication: LIVER INJURY
     Dosage: 1.2 G, ONCE DAILY
     Route: 041
     Dates: start: 20140822, end: 20140822
  2. ADENOSINE TRIPHOSPHATE DISODIUM (+) COENZYME A (+) INSULIN [Concomitant]
     Indication: NUTRITIONAL SUPPLEMENTATION
     Dosage: 20 MG, ONCE DAILY
     Route: 041
     Dates: start: 20140823, end: 20140823
  3. TRANEXAMIC ACID. [Concomitant]
     Active Substance: TRANEXAMIC ACID
     Indication: VAGINAL HAEMORRHAGE
     Dosage: 1 G, ONCE DAILY
     Route: 041
     Dates: start: 20140822, end: 20140822
  4. TIENAM [Suspect]
     Active Substance: CILASTATIN SODIUM\IMIPENEM
     Indication: BACTERAEMIA
     Dosage: 0.5 G, THREE TIMES A DAY
     Route: 041
     Dates: start: 20140823, end: 20140823

REACTIONS (1)
  - Epilepsy [Recovering/Resolving]

NARRATIVE: CASE EVENT DATE: 20140823
